FAERS Safety Report 9350656 (Version 1)
Quarter: 2013Q2

REPORT INFORMATION
  Report Type: Spontaneous
  Country: ES (occurrence: ES)
  Receive Date: 20130617
  Receipt Date: 20130617
  Transmission Date: 20140414
  Serious: Yes (Hospitalization)
  Sender: FDA-Public Use
  Company Number: PHHY2013ES058787

PATIENT
  Age: 68 Year
  Sex: Male

DRUGS (7)
  1. TEGRETOL [Suspect]
     Indication: NEUROPATHY PERIPHERAL
     Dosage: 600 MG, UNK
     Route: 048
     Dates: start: 20130318
  2. TEGRETOL [Suspect]
     Dosage: 300 MG, UNK
     Route: 048
     Dates: end: 20130418
  3. REVLIMID [Suspect]
     Indication: PLASMA CELL MYELOMA
     Dosage: 1 DF, QD
     Route: 048
     Dates: start: 20130312
  4. OMEPRAZOLE [Concomitant]
     Dosage: 1 DF, QD
     Route: 048
     Dates: start: 20130312
  5. COPALIA [Concomitant]
     Indication: HYPERTENSION
     Dosage: 1 DF, QD
     Route: 048
  6. HIDROXIL B12 B6 B1 [Concomitant]
     Indication: NEURITIS
     Dosage: 1 DF, QD
     Route: 048
     Dates: start: 20130313
  7. VALTREX [Concomitant]
     Indication: ANTIVIRAL PROPHYLAXIS
     Dosage: 1 DF, QD
     Route: 048
     Dates: start: 20130313

REACTIONS (4)
  - Balance disorder [Unknown]
  - Dizziness [Unknown]
  - Rash [Unknown]
  - Diplopia [Recovered/Resolved]
